FAERS Safety Report 4597588-7 (Version None)
Quarter: 2005Q1

REPORT INFORMATION
  Report Type: 
  Country: None (occurrence: None)
  Receive Date: 20050228
  Receipt Date: 20050228
  Transmission Date: 20050727
  Serious: Yes (Death, Hospitalization)
  Sender: FDA-Public Use
  Company Number: None

PATIENT
  Sex: Male

DRUGS (2)
  1. RISPERDAL [Suspect]
     Indication: DEPRESSION
     Dosage: 2 MG TWICE A DAY ORAL
     Route: 048
  2. REMERON [Suspect]
     Indication: DEPRESSION
     Dosage: 15 MG AT BEDTIME ORAL
     Route: 048

REACTIONS (16)
  - ASTHENIA [None]
  - BLOOD GLUCOSE INCREASED [None]
  - CARDIAC ARREST [None]
  - CONFUSIONAL STATE [None]
  - DEHYDRATION [None]
  - DIABETIC HYPEROSMOLAR COMA [None]
  - ELECTROLYTE IMBALANCE [None]
  - HYPERTHERMIA MALIGNANT [None]
  - LETHARGY [None]
  - METABOLIC DISORDER [None]
  - NEUROLEPTIC MALIGNANT SYNDROME [None]
  - PHOTOPHOBIA [None]
  - PNEUMONIA [None]
  - RENAL FAILURE ACUTE [None]
  - SHOCK [None]
  - STATUS EPILEPTICUS [None]
